FAERS Safety Report 10677822 (Version 2)
Quarter: 2015Q3

REPORT INFORMATION
  Report Type: Spontaneous
  Country: US (occurrence: US)
  Receive Date: 20141229
  Receipt Date: 20150819
  Transmission Date: 20151125
  Serious: No
  Sender: FDA-Public Use
  Company Number: US-GILEAD-2014-0128809

PATIENT
  Age: 19 Year
  Sex: Male

DRUGS (3)
  1. LETAIRIS [Suspect]
     Active Substance: AMBRISENTAN
     Indication: PRODUCT USED FOR UNKNOWN INDICATION
     Dosage: 5 MG, QD
     Route: 065
     Dates: start: 20130328, end: 201412
  2. VENTAVIS [Concomitant]
     Active Substance: ILOPROST
  3. CIALIS [Concomitant]
     Active Substance: TADALAFIL

REACTIONS (4)
  - Cough [Unknown]
  - Dyspnoea [Unknown]
  - Malaise [Unknown]
  - Pyrexia [Unknown]
